FAERS Safety Report 17093933 (Version 1)
Quarter: 2019Q4

REPORT INFORMATION
  Report Type: Report from Study
  Country: RU (occurrence: RU)
  Receive Date: 20191129
  Receipt Date: 20191129
  Transmission Date: 20200122
  Serious: Yes (Hospitalization, Other)
  Sender: FDA-Public Use
  Company Number: RU-ASTRAZENECA-2019SF69689

PATIENT
  Age: 66 Year
  Sex: Female
  Weight: 84 kg

DRUGS (7)
  1. ATORVASTATIN [Concomitant]
     Active Substance: ATORVASTATIN
  2. ASPIRIN CARDIO [Concomitant]
     Active Substance: ASPIRIN
  3. BETALOC ZOK [Suspect]
     Active Substance: METOPROLOL SUCCINATE
     Route: 048
     Dates: start: 201907, end: 201911
  4. NITROSPRAY [Concomitant]
     Active Substance: NITROGLYCERIN
  5. TELMISARTAN. [Concomitant]
     Active Substance: TELMISARTAN
  6. BRILINTA [Suspect]
     Active Substance: TICAGRELOR
     Indication: MYOCARDIAL INFARCTION
     Route: 048
     Dates: start: 201907
  7. AMLODIPINE [Concomitant]
     Active Substance: AMLODIPINE BESYLATE

REACTIONS (5)
  - Stent malfunction [Unknown]
  - Chest pain [Not Recovered/Not Resolved]
  - Arterial occlusive disease [Unknown]
  - Contusion [Recovered/Resolved]
  - Myocardial infarction [Recovered/Resolved]

NARRATIVE: CASE EVENT DATE: 201908
